FAERS Safety Report 16693945 (Version 1)
Quarter: 2019Q3

REPORT INFORMATION
  Report Type: Spontaneous
  Country: US (occurrence: US)
  Receive Date: 20190812
  Receipt Date: 20190812
  Transmission Date: 20191004
  Serious: No
  Sender: FDA-Public Use
  Company Number: US-SA-2019SA219799

PATIENT
  Age: 43 Year
  Sex: Female

DRUGS (7)
  1. DUPIXENT [Suspect]
     Active Substance: DUPILUMAB
     Indication: DERMATITIS ATOPIC
     Dosage: 600 MG, 1X
     Route: 058
     Dates: start: 20190802, end: 20190802
  2. A AND D NOS [Concomitant]
     Active Substance: DIMETHICONE\ZINC OXIDE OR PETROLATUM
  3. SERTRALINE HCL [Concomitant]
     Active Substance: SERTRALINE HYDROCHLORIDE
     Dosage: 100 MG
  4. PREVACID [Concomitant]
     Active Substance: LANSOPRAZOLE
     Dosage: 15 MG
  5. TRIPLE ANTIBIOTIC [GRAMICIDIN;NEOMYCIN SULFATE;POLYMYXIN B SULFATE] [Concomitant]
  6. MOMETASONE FUROATE. [Concomitant]
     Active Substance: MOMETASONE FUROATE
  7. TRAZODONE HYDROCHLORIDE. [Concomitant]
     Active Substance: TRAZODONE HYDROCHLORIDE
     Dosage: 100 MG

REACTIONS (2)
  - Dermatitis atopic [Recovered/Resolved]
  - Blister [Recovered/Resolved]

NARRATIVE: CASE EVENT DATE: 20190804
